FAERS Safety Report 16272096 (Version 1)
Quarter: 2019Q2

REPORT INFORMATION
  Report Type: Spontaneous
  Country: FR (occurrence: FR)
  Receive Date: 20190506
  Receipt Date: 20190506
  Transmission Date: 20190711
  Serious: Yes (Death)
  Sender: FDA-Public Use
  Company Number: FR-TEVA-2019-FR-1046034

PATIENT
  Age: 62 Year
  Sex: Male
  Weight: 78 kg

DRUGS (1)
  1. PACLITAXEL TEVA [Suspect]
     Active Substance: PACLITAXEL
     Indication: BRONCHIAL CARCINOMA
     Dosage: SEE COMMENTS
     Route: 041
     Dates: start: 20190304, end: 20190415

REACTIONS (4)
  - Loss of consciousness [Fatal]
  - Feeling hot [Fatal]
  - Sense of oppression [Fatal]
  - Cough [Fatal]

NARRATIVE: CASE EVENT DATE: 20190415
